FAERS Safety Report 22320279 (Version 1)
Quarter: 2023Q2

REPORT INFORMATION
  Report Type: Spontaneous
  Country: US (occurrence: US)
  Receive Date: 20230515
  Receipt Date: 20230515
  Transmission Date: 20230721
  Serious: No
  Sender: FDA-Public Use
  Company Number: US-ALEMBIC PHARMACUETICALS LIMITED-2023SCAL000180

PATIENT

DRUGS (1)
  1. BIMATOPROST [Suspect]
     Active Substance: BIMATOPROST
     Indication: Glaucoma
     Dosage: EYE DROPS FOR 3 WEEKS
     Route: 065

REACTIONS (2)
  - Periorbital fat atrophy [Not Recovered/Not Resolved]
  - Lid sulcus deepened [Not Recovered/Not Resolved]
